FAERS Safety Report 12091044 (Version 1)
Quarter: 2016Q1

REPORT INFORMATION
  Report Type: Spontaneous
  Country: GB (occurrence: GB)
  Receive Date: 20160218
  Receipt Date: 20160218
  Transmission Date: 20160526
  Serious: Yes (Other)
  Sender: FDA-Public Use
  Company Number: GB-PFIZER INC-2016086871

PATIENT
  Age: 62 Year
  Sex: Male
  Weight: 126 kg

DRUGS (6)
  1. BISOPROLOL [Concomitant]
     Active Substance: BISOPROLOL
     Dosage: 1 DF, 1X/DAY
     Dates: start: 20150911
  2. ISOTARD XL [Concomitant]
     Dosage: 0.5 DF, 1X/DAY
     Dates: start: 20150911
  3. CLENIL MODULITE [Concomitant]
     Active Substance: BECLOMETHASONE DIPROPIONATE
     Dosage: 2 DF, 2X/DAY
     Route: 055
     Dates: start: 20151111, end: 20151231
  4. BECONASE AQ [Concomitant]
     Active Substance: BECLOMETHASONE DIPROPIONATE MONOHYDRATE
     Dosage: 2 DF, 2X/DAY SPRAY
     Dates: start: 20150911
  5. ATORVASTATIN [Suspect]
     Active Substance: ATORVASTATIN
     Dosage: UNK
     Dates: start: 20150922
  6. ASPIRIN /00002701/ [Concomitant]
     Active Substance: ASPIRIN
     Dosage: 1 DF, 1X/DAY
     Dates: start: 20150911

REACTIONS (2)
  - Peripheral sensory neuropathy [Recovering/Resolving]
  - Sensory loss [Recovering/Resolving]

NARRATIVE: CASE EVENT DATE: 20160203
